FAERS Safety Report 20574591 (Version 6)
Quarter: 2022Q2

REPORT INFORMATION
  Report Type: Report from Study
  Country: US (occurrence: US)
  Receive Date: 20220309
  Receipt Date: 20220427
  Transmission Date: 20220720
  Serious: Yes (Hospitalization, Other)
  Sender: FDA-Public Use
  Company Number: US-ABBVIE-22K-163-4306319-00

PATIENT
  Age: 73 Year
  Sex: Male
  Weight: 63.560 kg

DRUGS (12)
  1. DUOPA [Suspect]
     Active Substance: CARBIDOPA\LEVODOPA
     Indication: Product used for unknown indication
     Route: 050
     Dates: start: 20160802, end: 20220306
  2. DUOPA [Suspect]
     Active Substance: CARBIDOPA\LEVODOPA
  3. CLONOPIN [Concomitant]
     Active Substance: CLONAZEPAM
     Indication: Anxiety
  4. SEROQUEL [Concomitant]
     Active Substance: QUETIAPINE FUMARATE
     Indication: Hallucination
  5. COVID-19 VACCINE [Concomitant]
     Indication: COVID-19 immunisation
     Route: 030
     Dates: start: 202101, end: 202101
  6. COVID-19 VACCINE [Concomitant]
     Route: 030
     Dates: start: 202102, end: 202102
  7. COVID-19 VACCINE [Concomitant]
     Route: 030
     Dates: start: 2021, end: 2021
  8. XADAGO [Concomitant]
     Active Substance: SAFINAMIDE MESYLATE
     Indication: Product used for unknown indication
  9. CLONAZEPAM [Concomitant]
     Active Substance: CLONAZEPAM
     Indication: Product used for unknown indication
  10. PAROXETINE [Concomitant]
     Active Substance: PAROXETINE
     Indication: Product used for unknown indication
  11. PANTOPRAZOLE [Concomitant]
     Active Substance: PANTOPRAZOLE
     Indication: Product used for unknown indication
  12. QUETIAPINE [Concomitant]
     Active Substance: QUETIAPINE
     Indication: Product used for unknown indication

REACTIONS (12)
  - Rehabilitation therapy [Unknown]
  - Hip fracture [Recovered/Resolved]
  - Wrong technique in device usage process [Recovered/Resolved]
  - Device occlusion [Recovered/Resolved]
  - Device dislocation [Unknown]
  - Asthenia [Not Recovered/Not Resolved]
  - Tremor [Not Recovered/Not Resolved]
  - Muscle spasms [Not Recovered/Not Resolved]
  - Fall [Unknown]
  - Anxiety [Unknown]
  - Hallucination [Recovered/Resolved]
  - Freezing phenomenon [Unknown]

NARRATIVE: CASE EVENT DATE: 20220205
